FAERS Safety Report 18694214 (Version 1)
Quarter: 2021Q1

REPORT INFORMATION
  Report Type: Other
  Country: JP (occurrence: JP)
  Receive Date: 20210104
  Receipt Date: 20210104
  Transmission Date: 20210419
  Serious: Yes (Other)
  Sender: FDA-Public Use
  Company Number: JP-ROCHE-2740864

PATIENT

DRUGS (3)
  1. RITUXIMAB. [Suspect]
     Active Substance: RITUXIMAB
     Indication: GRAFT VERSUS HOST DISEASE
     Route: 065
  2. MYCOPHENOLATE MOFETIL. [Suspect]
     Active Substance: MYCOPHENOLATE MOFETIL
     Indication: GRAFT VERSUS HOST DISEASE
     Route: 065
  3. RIBAVIRIN. [Suspect]
     Active Substance: RIBAVIRIN
     Indication: ADENOVIRUS INFECTION
     Route: 065

REACTIONS (8)
  - Cytomegalovirus infection [Unknown]
  - BK virus infection [Unknown]
  - Viral infection [Unknown]
  - Intentional product use issue [Unknown]
  - Herpes virus infection [Unknown]
  - Off label use [Unknown]
  - Adenovirus infection [Unknown]
  - Varicella zoster virus infection [Unknown]
